FAERS Safety Report 8045092-6 (Version None)
Quarter: 2012Q1

REPORT INFORMATION
  Report Type: 
  Country: None (occurrence: None)
  Receive Date: 20120113
  Receipt Date: 20120112
  Transmission Date: 20120608
  Serious: Yes (Hospitalization)
  Sender: FDA-Public Use
  Company Number: PHHY2012DE002602

PATIENT
  Sex: Male

DRUGS (3)
  1. RASILEZ [Suspect]
     Dosage: 300 MG, UNK
     Dates: start: 20100805
  2. ACE INHIBITOR NOS [Concomitant]
  3. METFORMIN HYDROCHLORIDE [Suspect]
     Dosage: 1 DF (1000 MG METFORMIN/50 MG VILDAGLIPTINE)
     Dates: start: 20090129

REACTIONS (1)
  - PANCREATITIS [None]
